FAERS Safety Report 14245657 (Version 2)
Quarter: 2017Q4

REPORT INFORMATION
  Report Type: Report from Study
  Country: None (occurrence: GB)
  Receive Date: 20171203
  Receipt Date: 20171214
  Transmission Date: 20180321
  Serious: Yes (Other)
  Sender: FDA-Public Use
  Company Number: GB-ABBVIE-17K-167-2091845-00

PATIENT
  Age: 62 Year
  Sex: Male

DRUGS (2)
  1. HUMIRA [Suspect]
     Active Substance: ADALIMUMAB
     Indication: ANKYLOSING SPONDYLITIS
     Route: 058
  2. HUMIRA [Suspect]
     Active Substance: ADALIMUMAB
     Route: 058
     Dates: start: 2017, end: 201710

REACTIONS (6)
  - Surgery [Unknown]
  - Nasopharyngitis [Unknown]
  - Fall [Unknown]
  - Wound secretion [Unknown]
  - Surgical failure [Unknown]
  - Ankle fracture [Unknown]

NARRATIVE: CASE EVENT DATE: 2017
